FAERS Safety Report 15360715 (Version 6)
Quarter: 2019Q4

REPORT INFORMATION
  Report Type: Spontaneous
  Country: US (occurrence: US)
  Receive Date: 20180907
  Receipt Date: 20191111
  Transmission Date: 20200122
  Serious: Yes (Other)
  Sender: FDA-Public Use
  Company Number: US-PFIZER INC-2018360517

PATIENT
  Age: 48 Year
  Sex: Female
  Weight: 69 kg

DRUGS (2)
  1. IBRANCE [Suspect]
     Active Substance: PALBOCICLIB
     Dosage: 100 MG, CYCLIC (D1-D21Q 28DAYS)
     Route: 048
     Dates: start: 20180811, end: 201910
  2. IBRANCE [Suspect]
     Active Substance: PALBOCICLIB
     Indication: BREAST CANCER METASTATIC
     Dosage: 125 MG, CYCLIC (D1-21 Q 28 DAYS)
     Route: 048
     Dates: start: 20180811, end: 2018

REACTIONS (9)
  - Tooth abscess [Unknown]
  - Neutrophil count decreased [Unknown]
  - Product dose omission [Unknown]
  - White blood cell count decreased [Not Recovered/Not Resolved]
  - Low density lipoprotein decreased [Unknown]
  - Blood glucose increased [Unknown]
  - Lymphoedema [Unknown]
  - Infection [Unknown]
  - High density lipoprotein increased [Unknown]

NARRATIVE: CASE EVENT DATE: 2018
